FAERS Safety Report 16177830 (Version 1)
Quarter: 2019Q2

REPORT INFORMATION
  Report Type: Report from Study
  Country: IT (occurrence: IT)
  Receive Date: 20190410
  Receipt Date: 20190410
  Transmission Date: 20190711
  Serious: Yes (Other)
  Sender: FDA-Public Use
  Company Number: IT-TEVA-2019-IT-1034012

PATIENT
  Age: 46 Year
  Sex: Female
  Weight: 55 kg

DRUGS (6)
  1. KEPPRA [Concomitant]
     Active Substance: LEVETIRACETAM
     Indication: EPILEPSY
     Route: 048
  2. TEMOZOLOMIDE. [Suspect]
     Active Substance: TEMOZOLOMIDE
     Indication: ANAPLASTIC ASTROCYTOMA
     Dosage: 110 MILLIGRAM DAILY;
     Route: 048
     Dates: start: 20171219, end: 20180129
  3. MEDROL 4 MG COMPRESSE [Concomitant]
     Route: 048
  4. PANTORC 40 MG COMPRESSE GASTRORESISTENTI [Concomitant]
     Route: 048
  5. TOTALIP 10 MG COMPRESSE RIVESTITE CON FILM [Concomitant]
     Route: 048
  6. SOLDESAM [Concomitant]
     Active Substance: DEXAMETHASONE
     Route: 030

REACTIONS (4)
  - Visual impairment [Recovering/Resolving]
  - Vertigo [Recovering/Resolving]
  - Thrombocytopenia [Recovering/Resolving]
  - Lymphopenia [Recovering/Resolving]

NARRATIVE: CASE EVENT DATE: 20180101
